FAERS Safety Report 4929581-6 (Version None)
Quarter: 2006Q1

REPORT INFORMATION
  Report Type: 
  Country: None (occurrence: None)
  Receive Date: 20060224
  Receipt Date: 20060216
  Transmission Date: 20060701
  Serious: Yes (Disabling, Other)
  Sender: FDA-Public Use
  Company Number: 2006024099

PATIENT
  Age: 55 Year
  Sex: Male
  Weight: 108.8633 kg

DRUGS (5)
  1. ZOLOFT [Suspect]
     Indication: DEPRESSION
     Dosage: ORAL
     Route: 048
  2. ZOLOFT [Suspect]
     Indication: PANIC ATTACK
     Dosage: ORAL
     Route: 048
  3. PAXIL [Suspect]
     Indication: ILL-DEFINED DISORDER
     Dosage: ORAL
     Route: 048
  4. INDERAL [Suspect]
     Indication: ILL-DEFINED DISORDER
     Dosage: ORAL
     Route: 048
  5. ZESTRIL [Concomitant]

REACTIONS (5)
  - BACK INJURY [None]
  - DRUG EFFECT DECREASED [None]
  - EYE DISORDER [None]
  - FALL [None]
  - HYPERTENSION [None]
